FAERS Safety Report 21645759 (Version 1)
Quarter: 2022Q4

REPORT INFORMATION
  Report Type: Report from Study
  Country: US (occurrence: US)
  Receive Date: 20221126
  Receipt Date: 20221126
  Transmission Date: 20230113
  Serious: Yes (Other)
  Sender: FDA-Public Use
  Company Number: US-KOREA IPSEN Pharma-2022-24258

PATIENT
  Age: 57 Year
  Sex: Male

DRUGS (1)
  1. SOMATULINE DEPOT [Suspect]
     Active Substance: LANREOTIDE ACETATE
     Indication: Carcinoid tumour of the small bowel
     Dosage: 120 MG/ 0.5 ML
     Route: 058
     Dates: start: 202202

REACTIONS (11)
  - Exostosis [Recovering/Resolving]
  - Blood glucose increased [Recovering/Resolving]
  - Headache [Recovered/Resolved]
  - Injection site pain [Recovered/Resolved]
  - Blood pressure systolic increased [Recovering/Resolving]
  - Arthritis [Recovering/Resolving]
  - Pustule [Recovering/Resolving]
  - Gastrointestinal disorder [Recovering/Resolving]
  - Diarrhoea [Recovering/Resolving]
  - Fatigue [Recovering/Resolving]
  - Depressed mood [Recovering/Resolving]

NARRATIVE: CASE EVENT DATE: 20220101
